FAERS Safety Report 4423092-2 (Version None)
Quarter: 2004Q3

REPORT INFORMATION
  Report Type: 
  Country: None (occurrence: None)
  Receive Date: 20040805
  Receipt Date: 20040723
  Transmission Date: 20050211
  Serious: Yes (Hospitalization)
  Sender: FDA-Public Use
  Company Number: US-JNJFOC-20030805731

PATIENT
  Age: 39 Year
  Sex: Female

DRUGS (6)
  1. REMICADE [Suspect]
     Indication: RHEUMATOID ARTHRITIS
     Dosage: 400 MG, 1 IN 4 WEEK, INTRAVENOUS
     Route: 042
     Dates: start: 20010518, end: 20030801
  2. DIAZEPAM [Concomitant]
  3. MULTIVITAMIN (MULTIVITAMINS) [Concomitant]
  4. AMBIEN [Concomitant]
  5. OXYCONTIN [Concomitant]
  6. NAPROXEN [Concomitant]

REACTIONS (4)
  - CARDIAC ARREST [None]
  - COMA [None]
  - PERICARDIAL EFFUSION [None]
  - PERICARDITIS [None]
